FAERS Safety Report 6165603-5 (Version None)
Quarter: 2009Q2

REPORT INFORMATION
  Report Type: 
  Country: None (occurrence: None)
  Receive Date: 20090423
  Receipt Date: 20090416
  Transmission Date: 20091009
  Serious: Yes (Hospitalization)
  Sender: FDA-Public Use
  Company Number: JP-EISAI INC.-E2090-00702-SPO-JP

PATIENT
  Sex: Female

DRUGS (4)
  1. ZONEGRAN [Suspect]
     Route: 048
     Dates: start: 20071019, end: 20071103
  2. MUCOSTA [Concomitant]
     Indication: GASTRITIS
     Route: 048
     Dates: start: 20071019, end: 20071103
  3. LOXONIN [Concomitant]
     Indication: HEADACHE
     Route: 048
     Dates: start: 20071020, end: 20071103
  4. JU-KAMA [Concomitant]
     Indication: CONSTIPATION
     Dosage: .99 GRAM PER DAY
     Route: 048
     Dates: start: 20071101, end: 20071103

REACTIONS (1)
  - TOXIC EPIDERMAL NECROLYSIS [None]
